FAERS Safety Report 20113020 (Version 1)
Quarter: 2021Q4

REPORT INFORMATION
  Report Type: Report from Study
  Country: CO (occurrence: CO)
  Receive Date: 20211125
  Receipt Date: 20211125
  Transmission Date: 20220303
  Serious: Yes (Hospitalization, Other)
  Sender: FDA-Public Use
  Company Number: CO-AstraZeneca-2021A809498

PATIENT
  Sex: Female
  Weight: 3 kg

DRUGS (1)
  1. SYNAGIS [Suspect]
     Active Substance: PALIVIZUMAB
     Indication: Prophylaxis
     Route: 030
     Dates: start: 20210814

REACTIONS (2)
  - Endocarditis [Not Recovered/Not Resolved]
  - Hydrocephalus [Unknown]

NARRATIVE: CASE EVENT DATE: 20210101
